FAERS Safety Report 8796320 (Version 2)
Quarter: 2012Q4

REPORT INFORMATION
  Report Type: 
  Country: FR (occurrence: FR)
  Receive Date: 20120919
  Receipt Date: 20121018
  Transmission Date: 20130627
  Serious: Yes (Other)
  Sender: FDA-Public Use
  Company Number: FR-PFIZER INC-2012226425

PATIENT
  Age: 75 Year
  Sex: Male
  Weight: 63 kg

DRUGS (1)
  1. SUTENT [Suspect]
     Indication: RENAL CANCER METASTATIC
     Dosage: 50 mg, 4 weeks/6
     Route: 048
     Dates: start: 20120103

REACTIONS (4)
  - Epilepsy [Recovered/Resolved]
  - Respiratory tract infection [Unknown]
  - Weight decreased [Recovering/Resolving]
  - Skin exfoliation [Recovering/Resolving]
